FAERS Safety Report 20672183 (Version 2)
Quarter: 2022Q2

REPORT INFORMATION
  Report Type: Spontaneous
  Country: SK (occurrence: None)
  Receive Date: 20220405
  Receipt Date: 20220426
  Transmission Date: 20220721
  Serious: Yes (Other)
  Sender: FDA-Public Use
  Company Number: SK-ROCHE-3060401

PATIENT
  Sex: Female

DRUGS (1)
  1. OCREVUS [Suspect]
     Active Substance: OCRELIZUMAB
     Indication: Multiple sclerosis
     Dosage: SECOND DOSE ADMINISTERED IN 2022.
     Route: 065
     Dates: start: 202111

REACTIONS (2)
  - Rash vesicular [Unknown]
  - Keratitis [Unknown]
